FAERS Safety Report 9786148 (Version 1)
Quarter: 2013Q4

REPORT INFORMATION
  Report Type: Spontaneous
  Country: GB (occurrence: None)
  Receive Date: 20131224
  Receipt Date: 20131224
  Transmission Date: 20140711
  Serious: Yes (Other)
  Sender: FDA-Public Use
  Company Number: GB-DEXPHARM-20131158

PATIENT
  Age: 42 Year
  Sex: Female
  Weight: 62 kg

DRUGS (1)
  1. OMEPRAZOLE (BATCH :0304131A) (NON DEXCEL) ACTIVE SUBSTANCES: OMEPRAZOLE [Suspect]
     Indication: MALAISE
     Route: 048
     Dates: start: 20131121

REACTIONS (3)
  - Chest pain [None]
  - Somnolence [None]
  - Depressed mood [None]
